FAERS Safety Report 21947980 (Version 2)
Quarter: 2023Q1

REPORT INFORMATION
  Report Type: Report from Study
  Country: US (occurrence: US)
  Receive Date: 20230203
  Receipt Date: 20230304
  Transmission Date: 20230418
  Serious: Yes (Hospitalization)
  Sender: FDA-Public Use
  Company Number: US-002147023-NVSC2023US019928

PATIENT
  Sex: Female

DRUGS (1)
  1. PROMACTA [Suspect]
     Active Substance: ELTROMBOPAG OLAMINE
     Indication: Immune thrombocytopenia
     Dosage: 25 MG, QD
     Route: 048
     Dates: start: 20230101

REACTIONS (8)
  - Atrial fibrillation [Unknown]
  - Genital discomfort [Unknown]
  - Oral pain [Unknown]
  - Vomiting [Unknown]
  - Nausea [Unknown]
  - Myalgia [Unknown]
  - Toothache [Unknown]
  - Drug ineffective [Unknown]
